FAERS Safety Report 14203916 (Version 1)
Quarter: 2017Q4

REPORT INFORMATION
  Report Type: Spontaneous
  Country: US (occurrence: None)
  Receive Date: 20171117
  Receipt Date: 20171117
  Transmission Date: 20180321
  Serious: No
  Sender: FDA-Public Use
  Company Number: None

PATIENT
  Age: 64 Year
  Sex: Male

DRUGS (1)
  1. GAMUNEX [Suspect]
     Active Substance: HUMAN IMMUNOGLOBULIN G
     Indication: IMMUNODEFICIENCY COMMON VARIABLE
     Dosage: DOSE AMOUNT - 80 GRAMS (800ML)?FREQUENCY - EVERY 28 DAYS
     Route: 042
     Dates: start: 20160114

REACTIONS (3)
  - Joint swelling [None]
  - Therapy non-responder [None]
  - Dyspnoea [None]

NARRATIVE: CASE EVENT DATE: 20171022
